FAERS Safety Report 10031609 (Version 2)
Quarter: 2014Q1

REPORT INFORMATION
  Report Type: Spontaneous
  Country: AR (occurrence: AR)
  Receive Date: 20140324
  Receipt Date: 20140324
  Transmission Date: 20141002
  Serious: Yes (Other)
  Sender: FDA-Public Use
  Company Number: AR-PFIZER INC-2013350710

PATIENT
  Age: 8 Year
  Sex: Male

DRUGS (1)
  1. GENOTROPIN [Suspect]
     Indication: GROWTH HORMONE DEFICIENCY
     Dosage: 5.3 MG, 6 X WEEK
     Dates: start: 20090302

REACTIONS (2)
  - Attention deficit/hyperactivity disorder [Not Recovered/Not Resolved]
  - Aphasia [Not Recovered/Not Resolved]
